FAERS Safety Report 9531147 (Version 1)
Quarter: 2013Q3

REPORT INFORMATION
  Report Type: Spontaneous
  Country: US (occurrence: US)
  Receive Date: 20130918
  Receipt Date: 20130918
  Transmission Date: 20140515
  Serious: Yes (Death, Other)
  Sender: FDA-Public Use
  Company Number: PHEH2013US019263

PATIENT
  Age: 31 Year
  Sex: Female

DRUGS (2)
  1. AFINITOR [Suspect]
     Indication: BREAST CANCER
     Dosage: 10 MG, QD
     Route: 048
  2. XGEVA [Concomitant]
     Indication: METASTASES TO BONE

REACTIONS (5)
  - Haemorrhage [Fatal]
  - Drug-induced liver injury [Unknown]
  - Blood bilirubin increased [Unknown]
  - Metastases to bone [Unknown]
  - Metastases to liver [Unknown]
